FAERS Safety Report 4355526-6 (Version None)
Quarter: 2004Q2

REPORT INFORMATION
  Report Type: 
  Country: None (occurrence: None)
  Receive Date: 20040505
  Receipt Date: 20040420
  Transmission Date: 20050107
  Serious: Yes (Hospitalization)
  Sender: FDA-Public Use
  Company Number: 234200

PATIENT
  Age: 16 Year
  Sex: Male
  Weight: 86 kg

DRUGS (1)
  1. NORDITROPIN [Suspect]
     Indication: GROWTH HORMONE DEFICIENCY
     Dosage: 0.35 MG,QD
     Dates: start: 20021001, end: 20030701

REACTIONS (1)
  - POLYCYTHAEMIA [None]
